FAERS Safety Report 9034220 (Version 1)
Quarter: 2013Q1

REPORT INFORMATION
  Report Type: Spontaneous
  Country: US (occurrence: None)
  Receive Date: 20130116
  Receipt Date: 20130116
  Transmission Date: 20140127
  Serious: Yes (Other)
  Sender: FDA-Public Use
  Company Number: None

PATIENT
  Age: 60 Year
  Sex: Male
  Weight: 65.77 kg

DRUGS (1)
  1. ZINC ACETATE ANHYDROUS\ZINC GLUCONATE [Suspect]
     Indication: INFLUENZA
     Dosage: 4 SPRAYS 3 HOURS PO
     Route: 048
     Dates: start: 20130101, end: 20130103

REACTIONS (1)
  - Anosmia [None]
